FAERS Safety Report 6403189-8 (Version None)
Quarter: 2009Q4

REPORT INFORMATION
  Report Type: 
  Country: None (occurrence: None)
  Receive Date: 20091015
  Receipt Date: 20091015
  Transmission Date: 20100525
  Serious: No
  Sender: FDA-Public Use
  Company Number: None

PATIENT
  Sex: Female
  Weight: 61.2356 kg

DRUGS (1)
  1. AVELOX [Suspect]
     Indication: CELLULITIS
     Dosage: 1 TAB QD ORAL (1 ONLY)
     Route: 048
     Dates: start: 20090917

REACTIONS (7)
  - DIZZINESS [None]
  - FEELING ABNORMAL [None]
  - GAIT DISTURBANCE [None]
  - HYPOAESTHESIA [None]
  - MOVEMENT DISORDER [None]
  - SWOLLEN TONGUE [None]
  - VISION BLURRED [None]
